FAERS Safety Report 9102247 (Version 1)
Quarter: 2013Q1

REPORT INFORMATION
  Report Type: Spontaneous
  Country: IS (occurrence: IS)
  Receive Date: 20130218
  Receipt Date: 20130218
  Transmission Date: 20140127
  Serious: Yes (Hospitalization)
  Sender: FDA-Public Use
  Company Number: IS-ASTRAZENECA-2013SE09421

PATIENT
  Sex: Female

DRUGS (2)
  1. MARCAIN SPINAL TUNG [Suspect]
     Indication: SPINAL ANAESTHESIA
     Route: 037
     Dates: start: 20130128, end: 20130128
  2. SUFENTA [Concomitant]
     Indication: SPINAL ANAESTHESIA
     Route: 037
     Dates: start: 20130128, end: 20130128

REACTIONS (1)
  - Meningitis [Unknown]
